FAERS Safety Report 7844854-5 (Version None)
Quarter: 2011Q4

REPORT INFORMATION
  Report Type: 
  Country: None (occurrence: None)
  Receive Date: 20111025
  Receipt Date: 20111019
  Transmission Date: 20120403
  Serious: Yes (Hospitalization)
  Sender: FDA-Public Use
  Company Number: FR-GLAXOSMITHKLINE-B0756533A

PATIENT
  Sex: Female

DRUGS (5)
  1. BROMAZEPAM [Suspect]
     Route: 048
  2. DUPHALAC [Suspect]
     Indication: CONSTIPATION
     Route: 048
     Dates: start: 20100106
  3. ZOFRAN [Suspect]
     Indication: PROPHYLAXIS OF NAUSEA AND VOMITING
     Dosage: 8MG TWICE PER DAY
     Route: 048
     Dates: start: 20091102
  4. PROZAC [Suspect]
     Indication: DEPRESSION
     Dosage: 20MG PER DAY
     Route: 048
     Dates: start: 20091228
  5. VIDAZA [Suspect]
     Indication: ACUTE MYELOID LEUKAEMIA
     Route: 058
     Dates: start: 20091102

REACTIONS (1)
  - ATRIAL FLUTTER [None]
